FAERS Safety Report 9458619 (Version 2)
Quarter: 2013Q3

REPORT INFORMATION
  Report Type: Spontaneous
  Country: MX (occurrence: MX)
  Receive Date: 20130814
  Receipt Date: 20130924
  Transmission Date: 20140515
  Serious: Yes (Death, Other)
  Sender: FDA-Public Use
  Company Number: PHHY2013MX087263

PATIENT
  Age: 66 Year
  Sex: Male

DRUGS (3)
  1. ACLASTA [Suspect]
     Indication: OSTEOPOROSIS
     Dosage: 5 MG, PER 100 ML
     Route: 042
     Dates: start: 20130808
  2. INSULIN [Concomitant]
     Indication: DIABETES MELLITUS
     Dosage: 1 DF, QD, 21 IU
  3. METFORMIN [Concomitant]
     Indication: DIABETES MELLITUS
     Dosage: 500 MG, QD

REACTIONS (9)
  - Respiratory arrest [Fatal]
  - Aspiration [Fatal]
  - Feeling cold [Fatal]
  - Hypoglycaemia [Fatal]
  - Asthenia [Fatal]
  - Unresponsive to stimuli [Fatal]
  - Sleep disorder [Fatal]
  - Vomiting [Fatal]
  - Myocardial infarction [Unknown]
